FAERS Safety Report 4395487-7 (Version None)
Quarter: 2004Q3

REPORT INFORMATION
  Report Type: 
  Country: None (occurrence: None)
  Receive Date: 20040708
  Receipt Date: 20040623
  Transmission Date: 20050211
  Serious: Yes (Other)
  Sender: FDA-Public Use
  Company Number: 207352

PATIENT
  Age: 37 Year
  Sex: Female

DRUGS (4)
  1. HERCEPTIN [Suspect]
     Indication: BREAST CANCER
     Dosage: SEE IMAGE
     Route: 042
     Dates: start: 20030101
  2. DOXORUBICIN HYDROCHLORIDE [Concomitant]
  3. CYTOXAN  (CYCLOPHOPSHAMIDE) [Concomitant]
  4. TAXOL [Concomitant]

REACTIONS (1)
  - SJOGREN'S SYNDROME [None]
